FAERS Safety Report 8515724-4 (Version None)
Quarter: 2012Q3

REPORT INFORMATION
  Report Type: 
  Country: None (occurrence: None)
  Receive Date: 20120717
  Receipt Date: 20120713
  Transmission Date: 20120928
  Serious: Yes (Other)
  Sender: FDA-Public Use
  Company Number: PHEH2012US011848

PATIENT
  Sex: Male

DRUGS (7)
  1. ADRIAMYCIN PFS [Concomitant]
     Dosage: 16 MG
  2. DECADRON [Concomitant]
     Dosage: 4 MG
  3. VINCRISTINE [Concomitant]
     Dosage: 0.7 MG
  4. PRILOSEC [Concomitant]
     Dosage: 20 G, QD
  5. BIAXIN [Concomitant]
     Dosage: 500 MG, TID
  6. AREDIA [Suspect]
     Indication: HYPERCALCAEMIA
  7. AREDIA [Suspect]
     Indication: BONE LESION

REACTIONS (9)
  - METASTASES TO BONE [None]
  - SPINAL OSTEOARTHRITIS [None]
  - ORAL CANDIDIASIS [None]
  - MULTIPLE MYELOMA [None]
  - PATHOLOGICAL FRACTURE [None]
  - DIABETES MELLITUS [None]
  - HAEMORRHOIDS [None]
  - THROMBOCYTOPENIA [None]
  - DUODENAL ULCER [None]
